FAERS Safety Report 8345359-8 (Version None)
Quarter: 2012Q2

REPORT INFORMATION
  Report Type: 
  Country: None (occurrence: None)
  Receive Date: 20120508
  Receipt Date: 20120504
  Transmission Date: 20120825
  Serious: No
  Sender: FDA-Public Use
  Company Number: US-PFIZER INC-2012110650

PATIENT
  Sex: Male

DRUGS (2)
  1. XANAX XR [Suspect]
     Indication: ANXIETY
     Dosage: UNK
  2. XANAX XR [Suspect]
     Indication: BLOOD PRESSURE ABNORMAL

REACTIONS (1)
  - MALAISE [None]
